FAERS Safety Report 5671379-8 (Version None)
Quarter: 2008Q1

REPORT INFORMATION
  Report Type: 
  Country: None (occurrence: None)
  Receive Date: 20080313
  Receipt Date: 20070226
  Transmission Date: 20080703
  Serious: Yes (Other)
  Sender: FDA-Public Use
  Company Number: MK-6030755

PATIENT
  Age: 76 Year
  Sex: Female
  Weight: 65 kg

DRUGS (2)
  1. RANITIDINE [Suspect]
     Indication: DYSPEPSIA
     Dosage: ;DAILY;ORAL
     Route: 048
     Dates: start: 20060424
  2. LOSARTAN POTASSIUM [Concomitant]

REACTIONS (1)
  - DRUG INEFFECTIVE [None]
